FAERS Safety Report 10517026 (Version 1)
Quarter: 2014Q4

REPORT INFORMATION
  Report Type: Spontaneous
  Country: US (occurrence: None)
  Receive Date: 20141003
  Receipt Date: 20141003
  Transmission Date: 20150528
  Serious: Yes (Hospitalization)
  Sender: FDA-Public Use
  Company Number: 1309765

PATIENT
  Sex: Male

DRUGS (3)
  1. PEGASYS [Suspect]
     Active Substance: PEGINTERFERON ALFA-2A
     Indication: HEPATITIS C
     Dates: start: 201302, end: 20131114
  2. IBUPROFEN. [Concomitant]
     Active Substance: IBUPROFEN
  3. COPEGUS [Suspect]
     Active Substance: RIBAVIRIN
     Indication: HEPATITIS C
     Dosage: 2 UNIT NOT REPORTED
     Dates: start: 201302, end: 20131117

REACTIONS (4)
  - Pain [None]
  - Stress [None]
  - Headache [None]
  - Pancreatitis acute [None]
